FAERS Safety Report 22651061 (Version 1)
Quarter: 2023Q2

REPORT INFORMATION
  Report Type: Spontaneous
  Country: US (occurrence: None)
  Receive Date: 20230627
  Receipt Date: 20230627
  Transmission Date: 20230721
  Serious: Yes (Disabling, Other)
  Sender: FDA-Public Use
  Company Number: None

PATIENT
  Age: 31 Year
  Sex: Female
  Weight: 58.95 kg

DRUGS (2)
  1. CITALOPRAM [Suspect]
     Active Substance: CITALOPRAM HYDROBROMIDE
     Indication: Anxiety
     Dosage: OTHER QUANTITY : 1 TABLET(S);?FREQUENCY : DAILY;?
     Route: 048
     Dates: start: 20230620, end: 20230623
  2. NURTEC ODT [Concomitant]
     Active Substance: RIMEGEPANT SULFATE

REACTIONS (7)
  - Syncope [None]
  - Tremor [None]
  - Restlessness [None]
  - Insomnia [None]
  - Hypervigilance [None]
  - Menstruation irregular [None]
  - Suicidal ideation [None]

NARRATIVE: CASE EVENT DATE: 20230622
